FAERS Safety Report 6894742-6 (Version None)
Quarter: 2010Q3

REPORT INFORMATION
  Report Type: 
  Country: None (occurrence: None)
  Receive Date: 20100730
  Receipt Date: 20100730
  Transmission Date: 20110219
  Serious: Yes (Life-Threatening, Hospitalization, Other)
  Sender: FDA-Public Use
  Company Number: None

PATIENT
  Age: 65 Year
  Sex: Male
  Weight: 72.5755 kg

DRUGS (1)
  1. INDOMETHACIN [Suspect]
     Indication: GOUT
     Dosage: 3 TIMES DAILY ORAL
     Route: 048
     Dates: start: 20100507, end: 20100724

REACTIONS (7)
  - ABASIA [None]
  - ASTHENIA [None]
  - DIARRHOEA [None]
  - FAECES DISCOLOURED [None]
  - HAEMORRHAGE [None]
  - NAUSEA [None]
  - ULCER HAEMORRHAGE [None]
